FAERS Safety Report 7069467-7 (Version None)
Quarter: 2010Q4

REPORT INFORMATION
  Report Type: 
  Country: None (occurrence: None)
  Receive Date: 20101028
  Receipt Date: 20100212
  Transmission Date: 20110411
  Serious: No
  Sender: FDA-Public Use
  Company Number: US-WYE-H13010510

PATIENT
  Sex: Male
  Weight: 89.44 kg

DRUGS (1)
  1. PROTONIX [Suspect]
     Indication: HYPERCHLORHYDRIA
     Route: 048
     Dates: start: 20100111

REACTIONS (1)
  - HEADACHE [None]
